FAERS Safety Report 8800987 (Version 2)
Quarter: 2013Q3

REPORT INFORMATION
  Report Type: Report from Study
  Country: DE (occurrence: DE)
  Receive Date: 20120921
  Receipt Date: 20130902
  Transmission Date: 20140515
  Serious: Yes (Other)
  Sender: FDA-Public Use
  Company Number: DE-BRISTOL-MYERS SQUIBB COMPANY-16970139

PATIENT
  Age: 54 Year
  Sex: Male
  Weight: 72 kg

DRUGS (3)
  1. CETUXIMAB [Suspect]
     Indication: NON-SMALL CELL LUNG CANCER
     Dosage: NO OF INF:17,LAST DOSE ON 11APR2012
     Route: 042
     Dates: start: 20111221
  2. CISPLATIN FOR INJ [Suspect]
     Indication: NON-SMALL CELL LUNG CANCER
     Dosage: NOF OF INF:6?LAST DOSE:4APR12
     Route: 042
     Dates: start: 20111221
  3. GEMCITABINE [Suspect]
     Indication: NON-SMALL CELL LUNG CANCER
     Dosage: NO OF INF:12?LAST DOSE:11APR2012?DAY 1 AND DAY 8 OF EACH 3WK CYCLE
     Route: 042
     Dates: start: 20111221

REACTIONS (1)
  - Subclavian vein thrombosis [Recovered/Resolved]
